FAERS Safety Report 16080014 (Version 1)
Quarter: 2019Q1

REPORT INFORMATION
  Report Type: Spontaneous
  Country: CN (occurrence: CN)
  Receive Date: 20190315
  Receipt Date: 20190315
  Transmission Date: 20190418
  Serious: Yes (Hospitalization)
  Sender: FDA-Public Use
  Company Number: CN-ASTRAZENECA-2019SE38583

PATIENT
  Age: 62 Year
  Sex: Female

DRUGS (2)
  1. BERBERINE [Concomitant]
     Active Substance: BERBERINE
     Indication: DIARRHOEA
  2. TAGRISSO [Suspect]
     Active Substance: OSIMERTINIB
     Indication: LUNG NEOPLASM MALIGNANT
     Route: 048
     Dates: start: 201903

REACTIONS (6)
  - Coma [Unknown]
  - Constipation [Unknown]
  - Diarrhoea [Recovering/Resolving]
  - Metastases to bone [Unknown]
  - Metastases to central nervous system [Unknown]
  - Asthenia [Not Recovered/Not Resolved]
